FAERS Safety Report 8572710-6 (Version None)
Quarter: 2012Q3

REPORT INFORMATION
  Report Type: 
  Country: None (occurrence: None)
  Receive Date: 20120806
  Receipt Date: 20120731
  Transmission Date: 20120928
  Serious: Yes (Other)
  Sender: FDA-Public Use
  Company Number: US-PFIZER INC-2012186286

PATIENT
  Age: 25 Year
  Sex: Female
  Weight: 54.422 kg

DRUGS (7)
  1. LYRICA [Suspect]
     Indication: FIBROMYALGIA
     Dosage: 150 MG, 2X/DAY
     Route: 048
     Dates: start: 20120601, end: 20120701
  2. PHENERGAN HCL [Concomitant]
     Indication: NAUSEA
     Dosage: UNK
  3. LYRICA [Suspect]
     Indication: RHEUMATOID ARTHRITIS
     Dosage: 75 MG, UNK
     Route: 048
     Dates: start: 20120101, end: 20120601
  4. VICODIN [Concomitant]
     Indication: FIBROMYALGIA
  5. LYRICA [Suspect]
     Indication: DEPRESSION
  6. NEXIUM [Concomitant]
     Indication: DYSPEPSIA
     Dosage: UNK
  7. VICODIN [Concomitant]
     Indication: RHEUMATOID ARTHRITIS
     Dosage: 7.5 MG, UNK
     Route: 048
     Dates: start: 20120601, end: 20120601

REACTIONS (10)
  - AGGRESSION [None]
  - EMOTIONAL DISORDER [None]
  - DEPRESSED MOOD [None]
  - AGITATION [None]
  - MENTAL IMPAIRMENT [None]
  - DRUG INEFFECTIVE [None]
  - STRESS [None]
  - MOOD SWINGS [None]
  - ACTIVITIES OF DAILY LIVING IMPAIRED [None]
  - DEPRESSION [None]
